FAERS Safety Report 8404766-5 (Version None)
Quarter: 2012Q2

REPORT INFORMATION
  Report Type: 
  Country: None (occurrence: None)
  Receive Date: 20120601
  Receipt Date: 20120525
  Transmission Date: 20120825
  Serious: Yes (Hospitalization, Other)
  Sender: FDA-Public Use
  Company Number: CA-ABBOTT-11P-028-0719639-00

PATIENT
  Sex: Female

DRUGS (1)
  1. HUMIRA [Suspect]
     Indication: CROHN'S DISEASE
     Route: 058
     Dates: start: 20040715

REACTIONS (7)
  - SINUSITIS [None]
  - INFECTION [None]
  - IMMUNOSUPPRESSION [None]
  - MALIGNANT PERITONEAL NEOPLASM [None]
  - NEOPLASM MALIGNANT [None]
  - ENDOMETRIAL CANCER STAGE 0 [None]
  - IMMUNE SYSTEM DISORDER [None]
